FAERS Safety Report 4950332-3 (Version None)
Quarter: 2006Q1

REPORT INFORMATION
  Report Type: 
  Country: None (occurrence: None)
  Receive Date: 20060315
  Receipt Date: 20060307
  Transmission Date: 20060701
  Serious: Yes (Hospitalization)
  Sender: FDA-Public Use
  Company Number: 2006-00855

PATIENT
  Age: 35 Year
  Sex: Female

DRUGS (2)
  1. PREDNISONE [Suspect]
     Indication: FIBROMUSCULAR DYSPLASIA
     Dosage: 80 MG , X 10 DAYS, ORAL
     Route: 048
  2. PREDNISONE [Suspect]
     Indication: POLYARTERITIS NODOSA
     Dosage: 80 MG , X 10 DAYS, ORAL
     Route: 048

REACTIONS (6)
  - ABNORMAL BEHAVIOUR [None]
  - ANEURYSM [None]
  - CONDITION AGGRAVATED [None]
  - FIBROMUSCULAR DYSPLASIA [None]
  - POLYARTERITIS NODOSA [None]
  - VASCULITIS [None]
